FAERS Safety Report 25286894 (Version 1)
Quarter: 2025Q2

REPORT INFORMATION
  Report Type: Spontaneous
  Country: US (occurrence: US)
  Receive Date: 20250509
  Receipt Date: 20250509
  Transmission Date: 20250716
  Serious: No
  Sender: AMGEN
  Company Number: US-AMGEN-USASP2025086578

PATIENT
  Age: 61 Year
  Sex: Female

DRUGS (8)
  1. PREDNISONE [Suspect]
     Active Substance: PREDNISONE
     Indication: Food allergy
     Route: 065
  2. PREDNISONE [Suspect]
     Active Substance: PREDNISONE
     Indication: Urticaria
  3. DIPHENHYDRAMINE [Concomitant]
     Active Substance: DIPHENHYDRAMINE
     Route: 065
  4. EPINEPHRINE [Concomitant]
     Active Substance: EPINEPHRINE
     Indication: Anaphylactic reaction
     Route: 030
  5. EPINEPHRINE [Concomitant]
     Active Substance: EPINEPHRINE
     Route: 030
  6. EPINEPHRINE [Concomitant]
     Active Substance: EPINEPHRINE
     Route: 030
  7. EPINEPHRINE [Concomitant]
     Active Substance: EPINEPHRINE
     Route: 030
  8. FAMOTIDINE [Concomitant]
     Active Substance: FAMOTIDINE
     Route: 065

REACTIONS (6)
  - Arthropod bite [Unknown]
  - Blood immunoglobulin E increased [Unknown]
  - Pruritus [Unknown]
  - Erythema [Unknown]
  - Skin warm [Unknown]
  - Off label use [Unknown]

NARRATIVE: CASE EVENT DATE: 20200401
